FAERS Safety Report 13874883 (Version 1)
Quarter: 2017Q3

REPORT INFORMATION
  Report Type: Spontaneous
  Country: US (occurrence: US)
  Receive Date: 20170816
  Receipt Date: 20170816
  Transmission Date: 20171127
  Serious: No
  Sender: FDA-Public Use
  Company Number: US-ROCHE-1276799

PATIENT
  Sex: Male

DRUGS (1)
  1. LUCENTIS [Suspect]
     Active Substance: RANIBIZUMAB
     Indication: MACULAR DEGENERATION
     Dosage: START APPROX 4 MONTHS, 3 SHOTS RIGHT EYE
     Route: 065
     Dates: start: 2013

REACTIONS (1)
  - Eye pain [Not Recovered/Not Resolved]
